FAERS Safety Report 8827983 (Version 3)
Quarter: 2024Q2

REPORT INFORMATION
  Report Type: Report from Study
  Country: CA (occurrence: CA)
  Receive Date: 20121005
  Receipt Date: 20240625
  Transmission Date: 20240716
  Serious: Yes (Other)
  Sender: FDA-Public Use
  Company Number: CA-JNJFOC-20121000552

PATIENT
  Age: 71 Year
  Sex: Male
  Weight: 138.47 kg

DRUGS (7)
  1. USTEKINUMAB [Suspect]
     Active Substance: USTEKINUMAB
     Indication: Psoriasis
     Route: 058
     Dates: start: 20120406
  2. USTEKINUMAB [Suspect]
     Active Substance: USTEKINUMAB
     Dosage: THERAPY END DATE : 26/FEB/2016
     Route: 058
     Dates: start: 20110525, end: 20160224
  3. USTEKINUMAB [Suspect]
     Active Substance: USTEKINUMAB
     Route: 058
     Dates: start: 20110621
  4. USTEKINUMAB [Suspect]
     Active Substance: USTEKINUMAB
     Route: 058
     Dates: start: 20110913
  5. USTEKINUMAB [Suspect]
     Active Substance: USTEKINUMAB
     Route: 058
     Dates: start: 20120113
  6. USTEKINUMAB [Suspect]
     Active Substance: USTEKINUMAB
     Route: 058
     Dates: start: 20120628
  7. USTEKINUMAB [Suspect]
     Active Substance: USTEKINUMAB
     Route: 058
     Dates: start: 20120926

REACTIONS (4)
  - Bowen^s disease [Recovered/Resolved]
  - Nephrolithiasis [Unknown]
  - Gout [Unknown]
  - Acrochordon [Unknown]

NARRATIVE: CASE EVENT DATE: 20120110
